FAERS Safety Report 11939302 (Version 7)
Quarter: 2016Q2

REPORT INFORMATION
  Report Type: Spontaneous
  Country: US (occurrence: US)
  Receive Date: 20160122
  Receipt Date: 20160411
  Transmission Date: 20160815
  Serious: Yes (Hospitalization)
  Sender: FDA-Public Use
  Company Number: US-ACTELION-A-NJ2014-104864

PATIENT
  Age: 27 Year
  Sex: Female

DRUGS (7)
  1. VELETRI [Suspect]
     Active Substance: EPOPROSTENOL
     Dosage: 8.6 NG/KG, PER MIN
     Route: 042
  2. VELETRI [Suspect]
     Active Substance: EPOPROSTENOL
     Dosage: 10.7 NG/KG, PER MIN
     Route: 042
  3. VELETRI [Suspect]
     Active Substance: EPOPROSTENOL
     Dosage: 12.6 NG/KG, PER MIN
     Route: 042
  4. VELETRI [Suspect]
     Active Substance: EPOPROSTENOL
     Dosage: 5.73 NG/KG, PER MIN
     Route: 042
     Dates: start: 20140807
  5. VELETRI [Suspect]
     Active Substance: EPOPROSTENOL
     Indication: PULMONARY ARTERIAL HYPERTENSION
     Dosage: 17.2 NG/KG, PER MIN
     Route: 042
     Dates: start: 20150316
  6. LETAIRIS [Concomitant]
     Active Substance: AMBRISENTAN
  7. ADCIRCA [Concomitant]
     Active Substance: TADALAFIL

REACTIONS (31)
  - Rash [Unknown]
  - Diarrhoea [Unknown]
  - Catheter site inflammation [Recovering/Resolving]
  - Infusion site mass [Unknown]
  - Catheter site infection [Unknown]
  - Catheter site discharge [Unknown]
  - Nausea [Unknown]
  - Abdominal pain upper [Unknown]
  - Catheter placement [Unknown]
  - Device related infection [Recovering/Resolving]
  - Catheter site haemorrhage [Unknown]
  - Depression [Unknown]
  - Eye pain [Unknown]
  - Catheter site rash [Recovering/Resolving]
  - Hypersensitivity [Unknown]
  - Catheter site pain [Unknown]
  - Catheter site pruritus [Recovering/Resolving]
  - Vomiting [Unknown]
  - Catheter site urticaria [Unknown]
  - Dyspnoea [Unknown]
  - Swelling [Unknown]
  - Catheter site warmth [Unknown]
  - Palpitations [Unknown]
  - Device dislocation [Unknown]
  - Pyrexia [Unknown]
  - Catheter site erythema [Unknown]
  - Pain in jaw [Unknown]
  - Headache [Unknown]
  - Oedema peripheral [Unknown]
  - Weight decreased [Unknown]
  - Tenderness [Unknown]

NARRATIVE: CASE EVENT DATE: 20141017
